FAERS Safety Report 10435621 (Version 2)
Quarter: 2014Q3

REPORT INFORMATION
  Report Type: Spontaneous
  Country: FI (occurrence: FI)
  Receive Date: 20140908
  Receipt Date: 20140918
  Transmission Date: 20150326
  Serious: Yes (Life-Threatening, Disabling, Other)
  Sender: FDA-Public Use
  Company Number: FI-ROCHE-1458238

PATIENT
  Age: 66 Year
  Sex: Male

DRUGS (13)
  1. BENDAMUSTINE [Concomitant]
     Active Substance: BENDAMUSTINE
     Indication: CHRONIC LYMPHOCYTIC LEUKAEMIA
     Dosage: ON DAY 1-2, FOR 5 CYCLES
     Route: 042
     Dates: start: 20091202, end: 20100318
  2. FLUDARA [Concomitant]
     Active Substance: FLUDARABINE PHOSPHATE
     Indication: CHRONIC LYMPHOCYTIC LEUKAEMIA
     Dosage: RECEIVED 1 CYCLE?DAY 1-3
     Route: 048
     Dates: start: 20140716, end: 20140718
  3. CYCLOPHOSPHAMIDE. [Concomitant]
     Active Substance: CYCLOPHOSPHAMIDE
     Indication: CHRONIC LYMPHOCYTIC LEUKAEMIA
     Dosage: RECEIVED 3 CYCLES BEFORE EVENT ONSET
     Route: 042
     Dates: start: 20090924, end: 20091106
  4. VINCRISTINE [Concomitant]
     Active Substance: VINCRISTINE
     Indication: CHRONIC LYMPHOCYTIC LEUKAEMIA
     Dosage: RECEIVED 3 CYCLES BEFORE EVENT ONSET
     Route: 042
     Dates: start: 20090924, end: 20091106
  5. PREDNISONE. [Concomitant]
     Active Substance: PREDNISONE
     Dosage: RECEIVED 2 CYCLES BEFORE EVENT ONSET
     Route: 048
     Dates: start: 201311
  6. BENDAMUSTINE [Concomitant]
     Active Substance: BENDAMUSTINE
     Indication: HERPES SIMPLEX
  7. MABTHERA [Suspect]
     Active Substance: RITUXIMAB
     Dosage: RECEIVED 1 CYCLE
     Route: 042
     Dates: start: 20140716, end: 20140716
  8. PREDNISONE. [Concomitant]
     Active Substance: PREDNISONE
     Indication: CHRONIC LYMPHOCYTIC LEUKAEMIA
     Dosage: DECREASING DOSE
     Route: 048
     Dates: start: 20091127, end: 201007
  9. CHLORAMBUCIL [Concomitant]
     Active Substance: CHLORAMBUCIL
     Indication: CHRONIC LYMPHOCYTIC LEUKAEMIA
     Dosage: RECEIVED 4 CYCLES BEFORE EVENT ONSET?DAY 1-3
     Route: 048
     Dates: start: 20131125, end: 20140130
  10. ACLOVIR [Concomitant]
     Indication: PROPHYLAXIS
     Route: 065
  11. BENDAMUSTINE [Concomitant]
     Active Substance: BENDAMUSTINE
     Indication: CYTOMEGALOVIRUS INFECTION
     Dosage: RECEIVED 5 CYCLES BEFORE EVENT ONSET?DAY 1-2
     Route: 042
     Dates: start: 20140219, end: 20140612
  12. DOXORUBICIN [Concomitant]
     Active Substance: DOXORUBICIN
     Indication: CHRONIC LYMPHOCYTIC LEUKAEMIA
     Dosage: RECEIVED 2 CYCLES BEFORE EVENT ONSET
     Route: 042
     Dates: start: 20091015, end: 20091106
  13. MABTHERA [Suspect]
     Active Substance: RITUXIMAB
     Indication: CHRONIC LYMPHOCYTIC LEUKAEMIA
     Dosage: RECEIVED 3 CYCLES
     Route: 042
     Dates: start: 20090924, end: 20091106

REACTIONS (2)
  - Progressive multifocal leukoencephalopathy [Not Recovered/Not Resolved]
  - Generalised tonic-clonic seizure [Unknown]

NARRATIVE: CASE EVENT DATE: 20140813
